FAERS Safety Report 4843483-5 (Version None)
Quarter: 2005Q4

REPORT INFORMATION
  Report Type: 
  Country: None (occurrence: None)
  Receive Date: 20051101
  Receipt Date: 20050908
  Transmission Date: 20060501
  Serious: No
  Sender: FDA-Public Use
  Company Number: MK200509-0097-1

PATIENT
  Age: 59 Year
  Sex: Female

DRUGS (2)
  1. NEUTROSPEC [Suspect]
     Indication: APPENDICITIS
     Dosage: 20 MCI, ONCE, IV
     Route: 042
     Dates: start: 20050907, end: 20050907
  2. NEUTROSPEC [Suspect]
     Indication: DIAGNOSTIC PROCEDURE
     Dosage: 20 MCI, ONCE, IV
     Route: 042
     Dates: start: 20050907, end: 20050907

REACTIONS (6)
  - BACK PAIN [None]
  - COUGH [None]
  - DIZZINESS [None]
  - DYSPNOEA [None]
  - FEELING HOT [None]
  - OXYGEN SATURATION DECREASED [None]
